FAERS Safety Report 6786143-6 (Version None)
Quarter: 2010Q2

REPORT INFORMATION
  Report Type: 
  Country: None (occurrence: None)
  Receive Date: 20100623
  Receipt Date: 20100623
  Transmission Date: 20101027
  Serious: Yes (Death)
  Sender: FDA-Public Use
  Company Number: None

PATIENT
  Age: 18 Month
  Sex: Female

DRUGS (1)
  1. TYLENOL [Suspect]

REACTIONS (9)
  - ANURIA [None]
  - HEART RATE INCREASED [None]
  - LETHARGY [None]
  - PRODUCT QUALITY ISSUE [None]
  - PYREXIA [None]
  - RETCHING [None]
  - TRANSMISSION OF AN INFECTIOUS AGENT VIA A MEDICINAL PRODUCT [None]
  - VIRAL INFECTION [None]
  - VOMITING [None]
